FAERS Safety Report 8217592-7 (Version None)
Quarter: 2012Q1

REPORT INFORMATION
  Report Type: 
  Country: None (occurrence: None)
  Receive Date: 20120319
  Receipt Date: 20120319
  Transmission Date: 20120608
  Serious: No
  Sender: FDA-Public Use
  Company Number: None

PATIENT
  Age: 16 Year
  Sex: Female
  Weight: 48.534 kg

DRUGS (1)
  1. SEROQUEL [Suspect]
     Indication: INSOMNIA
     Dosage: 75MG
     Route: 048
     Dates: start: 20091201, end: 20110325

REACTIONS (2)
  - VISUAL TRACKING TEST ABNORMAL [None]
  - EXTRAOCULAR MUSCLE DISORDER [None]
